FAERS Safety Report 8579764-1 (Version None)
Quarter: 2012Q3

REPORT INFORMATION
  Report Type: 
  Country: None (occurrence: None)
  Receive Date: 20120808
  Receipt Date: 20120801
  Transmission Date: 20120928
  Serious: Yes (Hospitalization)
  Sender: FDA-Public Use
  Company Number: US-ACTELION-A-NJ2012-69023

PATIENT
  Age: 63 Year
  Sex: Male

DRUGS (3)
  1. MOTRIN [Concomitant]
  2. TRACLEER [Suspect]
     Indication: PULMONARY ARTERIAL HYPERTENSION
     Dosage: UNK
     Route: 048
     Dates: start: 20061101
  3. COUMADIN [Concomitant]

REACTIONS (2)
  - HAEMORRHAGE [None]
  - RED BLOOD CELL COUNT DECREASED [None]
